FAERS Safety Report 23441942 (Version 1)
Quarter: 2024Q1

REPORT INFORMATION
  Report Type: Spontaneous
  Country: US (occurrence: US)
  Receive Date: 20240125
  Receipt Date: 20240125
  Transmission Date: 20240410
  Serious: No
  Sender: FDA-Public Use
  Company Number: US-OPELLA-2024OHG002317

PATIENT

DRUGS (1)
  1. ACT ANTICAVITY FLUORIDE KIDS GROOVY GRAPE [Suspect]
     Active Substance: SODIUM FLUORIDE

REACTIONS (1)
  - Hypoaesthesia oral [Unknown]
